FAERS Safety Report 21312788 (Version 2)
Quarter: 2022Q4

REPORT INFORMATION
  Report Type: Spontaneous
  Country: FR (occurrence: FR)
  Receive Date: 20220909
  Receipt Date: 20221109
  Transmission Date: 20230113
  Serious: Yes (Hospitalization, Other)
  Sender: FDA-Public Use
  Company Number: FR-NOVARTISPH-NVSC2018FR013567

PATIENT
  Age: 71 Year
  Sex: Male
  Weight: 71 kg

DRUGS (11)
  1. PREDNISONE [Suspect]
     Active Substance: PREDNISONE
     Indication: Plasma cell myeloma
     Dosage: 100 MG
     Route: 048
     Dates: start: 20180108, end: 20180112
  2. CYCLOPHOSPHAMIDE [Suspect]
     Active Substance: CYCLOPHOSPHAMIDE
     Indication: Plasma cell myeloma
     Dosage: 300 MG/M2, QW (ON DAYS 1, 8 AND 15 WITH 1 WEEK OFF OF EVERY 28 DAY CYCLE)
     Route: 048
     Dates: start: 20180219, end: 20181002
  3. ORGADRONE [Suspect]
     Active Substance: DEXAMETHASONE SODIUM PHOSPHATE
     Indication: Plasma cell myeloma
     Dosage: 20 MG
     Route: 048
     Dates: start: 20180219, end: 20181010
  4. ORGADRONE [Suspect]
     Active Substance: DEXAMETHASONE SODIUM PHOSPHATE
     Dosage: 20 MG
     Route: 048
  5. ALKERAN [Suspect]
     Active Substance: MELPHALAN
     Indication: Plasma cell myeloma
     Dosage: 16 MG (DOSAGE FORM: UNSPECIFIED)
     Route: 048
  6. ALKERAN [Suspect]
     Active Substance: MELPHALAN
     Dosage: 9 MG/M2
     Route: 048
     Dates: start: 20180108, end: 20180112
  7. VELCADE [Suspect]
     Active Substance: BORTEZOMIB
     Indication: Plasma cell myeloma
     Dosage: 1.3 MG/M2
     Route: 058
     Dates: start: 20180108, end: 20180208
  8. VELCADE [Suspect]
     Active Substance: BORTEZOMIB
     Dosage: 2.6 MG/M2, QW
     Route: 058
     Dates: start: 20180219, end: 20180307
  9. VELCADE [Suspect]
     Active Substance: BORTEZOMIB
     Dosage: 1.3 MG/M2
     Route: 058
     Dates: start: 20180219, end: 20181009
  10. VELCADE [Suspect]
     Active Substance: BORTEZOMIB
     Dosage: 1 MG/M2
     Route: 058
  11. REVLIMID [Concomitant]
     Active Substance: LENALIDOMIDE
     Indication: Plasma cell myeloma
     Dosage: 25 MG
     Route: 048

REACTIONS (9)
  - Syncope [Recovered/Resolved]
  - Herpes virus infection [Recovered/Resolved]
  - Primary amyloidosis [Not Recovered/Not Resolved]
  - Amyloidosis [Not Recovered/Not Resolved]
  - Malaise [Recovered/Resolved]
  - Asthenia [Not Recovered/Not Resolved]
  - Diarrhoea [Recovered/Resolved]
  - Myalgia [Recovered/Resolved]
  - Hypertrophic cardiomyopathy [Not Recovered/Not Resolved]

NARRATIVE: CASE EVENT DATE: 20180108
